FAERS Safety Report 23077264 (Version 1)
Quarter: 2023Q4

REPORT INFORMATION
  Report Type: Other
  Country: GB (occurrence: GB)
  Receive Date: 20231018
  Receipt Date: 20231018
  Transmission Date: 20240109
  Serious: Yes (Other)
  Sender: FDA-Public Use
  Company Number: GB-MACLEODS PHARMA EU LTD-MAC2023043822

PATIENT

DRUGS (8)
  1. CLOPIDOGREL [Suspect]
     Active Substance: CLOPIDOGREL BISULFATE
     Indication: Product used for unknown indication
     Dosage: 1 DOSAGE FORM, QD (ONE TABLET ONCE DAILY, TO REDUCE RISK OF BLOCKE...)
     Route: 065
     Dates: start: 20230602
  2. AMLODIPINE [Concomitant]
     Active Substance: AMLODIPINE BESYLATE
     Indication: Hypertension
     Dosage: 1 DOSAGE FORM, QD (1 TABLET ONCE DAILY TO LOWER BLOOD PRESSURE)
     Route: 065
     Dates: start: 20230602
  3. ATORVASTATIN [Concomitant]
     Active Substance: ATORVASTATIN
     Indication: Hypercholesterolaemia
     Dosage: 1 DOSAGE FORM, QD (ONE TO BE TAKEN DAILY TO LOWER CHOLESTEROL (STA...)
     Route: 065
     Dates: start: 20230602, end: 20230921
  4. COCODAMOL [Concomitant]
     Active Substance: ACETAMINOPHEN\CODEINE PHOSPHATE
     Indication: Product used for unknown indication
     Dosage: UNK (TAKE ONE OR TWO CAPSULES UP TO FOUR TIMES A DAY...)
     Route: 065
     Dates: start: 20230818, end: 20230911
  5. CODEINE PHOSPHATE [Concomitant]
     Active Substance: CODEINE PHOSPHATE
     Indication: Pain
     Dosage: 1 DOSAGE FORM, QID (TAKE ONE TABLET UPTO FOUR TIMES DAILY, FOR PAIN)
     Route: 065
     Dates: start: 20230816, end: 20230913
  6. DOCUSATE SODIUM [Concomitant]
     Active Substance: DOCUSATE SODIUM
     Indication: Constipation
     Dosage: 2 DOSAGE FORM, BID (TWO CAPSULES TWICE DAILY TO PREVENT CONSTIPATION)
     Route: 065
     Dates: start: 20230712, end: 20230719
  7. ACETAMINOPHEN [Concomitant]
     Active Substance: ACETAMINOPHEN
     Indication: Pain
     Dosage: 2 DOSAGE FORM, QID (TWO TABLETS FOUR TIMES DAILY FOR PAIN)
     Route: 065
     Dates: start: 20230921
  8. ZOPICLONE [Concomitant]
     Active Substance: ZOPICLONE
     Indication: Ill-defined disorder
     Dosage: 1 DOSAGE FORM, QD AT NIGHT, NO MORE THAN 3X PER WEEK; FREQ USE LESSENS BENEFIT, LEADS TO DEPENDENCE
     Route: 065
     Dates: start: 20230921

REACTIONS (1)
  - Increased tendency to bruise [Unknown]

NARRATIVE: CASE EVENT DATE: 20230928
